FAERS Safety Report 8843034 (Version 3)
Quarter: 2013Q4

REPORT INFORMATION
  Report Type: Spontaneous
  Country: US (occurrence: US)
  Receive Date: 20121016
  Receipt Date: 20131001
  Transmission Date: 20140711
  Serious: Yes (Hospitalization)
  Sender: FDA-Public Use
  Company Number: US-GLAXOSMITHKLINE-A0997547A

PATIENT
  Age: 43 Year
  Sex: Female

DRUGS (3)
  1. FLOLAN [Suspect]
     Indication: PULMONARY ARTERIAL HYPERTENSION
     Dosage: 72NGKM CONTINUOUS
     Route: 042
     Dates: start: 19990525, end: 20130925
  2. REVATIO [Suspect]
     Indication: PRODUCT USED FOR UNKNOWN INDICATION
     Route: 065
  3. VIAGRA [Concomitant]
     Indication: PRODUCT USED FOR UNKNOWN INDICATION
     Dosage: 50MG THREE TIMES PER DAY
     Route: 065

REACTIONS (11)
  - Staphylococcal infection [Unknown]
  - Medical device complication [Unknown]
  - Catheter site swelling [Unknown]
  - Catheter site pain [Unknown]
  - Catheter site erythema [Unknown]
  - Device related infection [Unknown]
  - Anxiety [Unknown]
  - Pain in extremity [Unknown]
  - Pain in jaw [Unknown]
  - Rash [Not Recovered/Not Resolved]
  - Diarrhoea [Unknown]
